FAERS Safety Report 4433208-X (Version None)
Quarter: 2004Q3

REPORT INFORMATION
  Report Type: 
  Country: None (occurrence: None)
  Receive Date: 20040823
  Receipt Date: 20040816
  Transmission Date: 20050211
  Serious: Yes (Hospitalization)
  Sender: FDA-Public Use
  Company Number: GBWYE983718AUG04

PATIENT
  Age: 1 Year
  Sex: Male

DRUGS (2)
  1. ADVIL [Suspect]
     Indication: PYREXIA
     Dosage: 2.5ML (FREQUENCY UNSPECIFIED, STRENGTH 50MG)
  2. ACETAMINOPHEN [Concomitant]

REACTIONS (12)
  - ACIDOSIS [None]
  - AZOTAEMIA [None]
  - BLOOD BICARBONATE ABNORMAL [None]
  - BLOOD PRESSURE ABNORMAL [None]
  - DEHYDRATION [None]
  - HYPERKALAEMIA [None]
  - RENAL CORTICAL NECROSIS [None]
  - RENAL FAILURE ACUTE [None]
  - RENAL TUBULAR NECROSIS [None]
  - RESPIRATORY SYNCYTIAL VIRUS INFECTION [None]
  - SOMNOLENCE [None]
  - WHEEZING [None]
